FAERS Safety Report 26096828 (Version 1)
Quarter: 2025Q4

REPORT INFORMATION
  Report Type: Spontaneous
  Country: JP (occurrence: JP)
  Receive Date: 20251127
  Receipt Date: 20251127
  Transmission Date: 20260117
  Serious: Yes (Other)
  Sender: ROCHE
  Company Number: JP-002147023-NVSJ2025JP011260

PATIENT

DRUGS (1)
  1. RANIBIZUMAB [Suspect]
     Active Substance: RANIBIZUMAB
     Indication: Neovascular age-related macular degeneration
     Dosage: 100 MILLIGRAM PER MILLILITRE, EVERY 24 WEEKS
     Route: 047

REACTIONS (3)
  - Cataract [Unknown]
  - Vitreous haemorrhage [Unknown]
  - Conjunctival erosion [Unknown]
